FAERS Safety Report 20812937 (Version 2)
Quarter: 2023Q2

REPORT INFORMATION
  Report Type: Spontaneous
  Country: US (occurrence: US)
  Receive Date: 20220511
  Receipt Date: 20230529
  Transmission Date: 20230722
  Serious: Yes (Hospitalization)
  Sender: FDA-Public Use
  Company Number: US-UCBSA-2022011770

PATIENT
  Age: 51 Year
  Sex: Female

DRUGS (2)
  1. CIMZIA [Suspect]
     Active Substance: CERTOLIZUMAB PEGOL
     Indication: Crohn^s disease
     Dosage: 200 MILLIGRAM, EV 2 WEEKS(QOW)
     Route: 058
     Dates: start: 20210504
  2. PREDNISONE [Concomitant]
     Active Substance: PREDNISONE
     Indication: Gait disturbance
     Dosage: UNK

REACTIONS (7)
  - Crohn^s disease [Unknown]
  - Tongue ulceration [Unknown]
  - Glossitis [Unknown]
  - Skin fissures [Unknown]
  - Pain in extremity [Unknown]
  - Arthralgia [Unknown]
  - Therapeutic product effect decreased [Unknown]

NARRATIVE: CASE EVENT DATE: 20220301
